FAERS Safety Report 8533947-5 (Version None)
Quarter: 2012Q3

REPORT INFORMATION
  Report Type: 
  Country: None (occurrence: None)
  Receive Date: 20120724
  Receipt Date: 20120718
  Transmission Date: 20120928
  Serious: Yes (Hospitalization)
  Sender: FDA-Public Use
  Company Number: US-JNJFOC-20120707697

PATIENT
  Sex: Female
  Weight: 41.6 kg

DRUGS (5)
  1. REMICADE [Suspect]
     Indication: CROHN'S DISEASE
     Route: 042
     Dates: start: 20120525
  2. REMICADE [Suspect]
     Route: 042
     Dates: start: 20120406
  3. ANTIBIOTICS FOR IBD [Concomitant]
  4. PREDNISONE [Concomitant]
  5. IRON [Concomitant]

REACTIONS (2)
  - ABDOMINAL ABSCESS [None]
  - CROHN'S DISEASE [None]
